FAERS Safety Report 12631388 (Version 2)
Quarter: 2016Q3

REPORT INFORMATION
  Report Type: Spontaneous
  Country: US (occurrence: US)
  Receive Date: 20160808
  Receipt Date: 20160808
  Transmission Date: 20161109
  Serious: No
  Sender: FDA-Public Use
  Company Number: US-BEH-2015053679

PATIENT
  Sex: Female
  Weight: 45 kg

DRUGS (15)
  1. HIZENTRA [Suspect]
     Active Substance: HUMAN IMMUNOGLOBULIN G
     Route: 058
  2. NATURAL SENNA [Concomitant]
     Active Substance: SENNOSIDES A AND B
  3. HIZENTRA [Suspect]
     Active Substance: HUMAN IMMUNOGLOBULIN G
     Indication: IMMUNODEFICIENCY COMMON VARIABLE
     Route: 058
  4. SEROQUEL [Concomitant]
     Active Substance: QUETIAPINE FUMARATE
  5. CIPRO [Concomitant]
     Active Substance: CIPROFLOXACIN HYDROCHLORIDE
  6. ACETAMINOPHEN. [Concomitant]
     Active Substance: ACETAMINOPHEN
  7. EPIPEN [Concomitant]
     Active Substance: EPINEPHRINE
     Indication: ANAPHYLACTIC REACTION
  8. RITALIN [Concomitant]
     Active Substance: METHYLPHENIDATE HYDROCHLORIDE
  9. NEXIUM [Concomitant]
     Active Substance: ESOMEPRAZOLE MAGNESIUM
  10. TOPAMAX [Concomitant]
     Active Substance: TOPIRAMATE
  11. MORPHINE SULFATE. [Concomitant]
     Active Substance: MORPHINE SULFATE
  12. DIPHENHYDRAMINE. [Concomitant]
     Active Substance: DIPHENHYDRAMINE
  13. LIDOCAINE. [Concomitant]
     Active Substance: LIDOCAINE
  14. LUNESTA [Concomitant]
     Active Substance: ESZOPICLONE
  15. CELEBREX [Concomitant]
     Active Substance: CELECOXIB

REACTIONS (1)
  - Infusion site swelling [Unknown]
